FAERS Safety Report 25873193 (Version 1)
Quarter: 2025Q4

REPORT INFORMATION
  Report Type: Spontaneous
  Country: EU (occurrence: EU)
  Receive Date: 20251002
  Receipt Date: 20251002
  Transmission Date: 20260118
  Serious: Yes (Hospitalization, Other)
  Sender: BRACCO
  Company Number: EU-BRACCO-2025SE06717

PATIENT
  Sex: Female

DRUGS (1)
  1. IOMERON [Suspect]
     Active Substance: IOMEPROL
     Indication: Computerised tomogram
     Dosage: UNK, SINGLE
     Route: 042

REACTIONS (2)
  - Vomiting [Unknown]
  - Aspiration [Unknown]
